FAERS Safety Report 5314518-0 (Version None)
Quarter: 2007Q2

REPORT INFORMATION
  Report Type: 
  Country: None (occurrence: None)
  Receive Date: 20070501
  Receipt Date: 20070501
  Transmission Date: 20071010
  Serious: No
  Sender: FDA-Public Use
  Company Number: None

PATIENT
  Age: 26 Year
  Sex: Female

DRUGS (1)
  1. BACTRIM DS [Suspect]
     Dosage: DAILY AT BEDTIME
     Dates: start: 20061004, end: 20061007

REACTIONS (2)
  - DYSPNOEA [None]
  - THROAT IRRITATION [None]
